FAERS Safety Report 4375329-6 (Version None)
Quarter: 2004Q2

REPORT INFORMATION
  Report Type: 
  Country: None (occurrence: None)
  Receive Date: 20040603
  Receipt Date: 20040524
  Transmission Date: 20050107
  Serious: No
  Sender: FDA-Public Use
  Company Number: CART-10250

PATIENT
  Age: 45 Year
  Sex: Female

DRUGS (1)
  1. CARTICEL [Suspect]
     Indication: ARTHROPATHY
     Dosage: 1 NA ONCE IS
     Dates: start: 19971002, end: 19971002

REACTIONS (5)
  - FAILURE OF IMPLANT [None]
  - JOINT ADHESION [None]
  - JOINT DISLOCATION [None]
  - LOCALISED OSTEOARTHRITIS [None]
  - SYNOVITIS [None]
